FAERS Safety Report 10335363 (Version 2)
Quarter: 2014Q3

REPORT INFORMATION
  Report Type: Spontaneous
  Country: US (occurrence: US)
  Receive Date: 20140723
  Receipt Date: 20140723
  Transmission Date: 20150326
  Serious: No
  Sender: FDA-Public Use
  Company Number: US-UNITED THERAPEUTICS-UTC-044791

PATIENT
  Sex: Female
  Weight: 70.76 kg

DRUGS (8)
  1. REMODULIN [Suspect]
     Active Substance: TREPROSTINIL
     Dosage: 0.018 UG/KG/MINUTE
     Route: 058
     Dates: start: 20131223
  2. REMODULIN [Suspect]
     Active Substance: TREPROSTINIL
     Dosage: 0.018 UG/KG/MINUTE
     Route: 058
     Dates: start: 20131223
  3. REMODULIN [Suspect]
     Active Substance: TREPROSTINIL
     Dosage: 0.026 UG/KG/MIN
     Route: 041
  4. REVATIO [Concomitant]
     Active Substance: SILDENAFIL CITRATE
  5. REMODULIN [Suspect]
     Active Substance: TREPROSTINIL
     Dosage: 0.018 UG/KG/MINUTE
     Route: 058
     Dates: start: 20131223
  6. REMODULIN [Suspect]
     Active Substance: TREPROSTINIL
     Dosage: 0.026 UG/KG/MIN
     Route: 041
  7. REMODULIN [Suspect]
     Active Substance: TREPROSTINIL
     Dosage: 0.026 UG/KG/MIN
     Route: 041
  8. TRACLEER [Concomitant]
     Active Substance: BOSENTAN\BOSENTAN MONOHYDRATE

REACTIONS (7)
  - Incorrect drug administration rate [Unknown]
  - Accidental overdose [Unknown]
  - Musculoskeletal pain [Unknown]
  - Muscle tightness [Unknown]
  - Pain in jaw [Unknown]
  - Faeces soft [Unknown]
  - Nausea [Unknown]
